FAERS Safety Report 21087192 (Version 1)
Quarter: 2022Q3

REPORT INFORMATION
  Report Type: Spontaneous
  Country: US (occurrence: None)
  Receive Date: 20220714
  Receipt Date: 20220714
  Transmission Date: 20221027
  Serious: No
  Sender: FDA-Public Use
  Company Number: None

PATIENT
  Age: 47 Year
  Sex: Female

DRUGS (9)
  1. WELIREG [Suspect]
     Active Substance: BELZUTIFAN
  2. BETHANECHOL CHLORIDE [Concomitant]
  3. CLONAZEPAM [Concomitant]
     Active Substance: CLONAZEPAM
  4. CLONIDINE [Concomitant]
     Active Substance: CLONIDINE
  5. VITAMIN B [Concomitant]
     Active Substance: VITAMIN B
  6. VITAMIN C [Concomitant]
     Active Substance: ASCORBIC ACID
  7. CALCIUM [Concomitant]
     Active Substance: CALCIUM
  8. WOMENS VITAMIN [Concomitant]
  9. ZOFRAN [Concomitant]
     Active Substance: ONDANSETRON HYDROCHLORIDE

REACTIONS (4)
  - Autoimmune disorder [None]
  - Stress [None]
  - Haemoglobin decreased [None]
  - Hair disorder [None]
